FAERS Safety Report 7263442-5 (Version None)
Quarter: 2011Q1

REPORT INFORMATION
  Report Type: 
  Country: None (occurrence: None)
  Receive Date: 20110130
  Receipt Date: 20101107
  Transmission Date: 20110831
  Serious: No
  Sender: FDA-Public Use
  Company Number: US-ABBOTT-10P-163-0683889-00

PATIENT
  Age: 50 Year
  Sex: Female

DRUGS (6)
  1. METHOTREXATE [Concomitant]
     Indication: RHEUMATOID ARTHRITIS
     Route: 048
  2. HUMIRA [Suspect]
     Indication: RHEUMATOID ARTHRITIS
     Dates: start: 20100901
  3. FOLIC ACID [Concomitant]
     Indication: PRODUCT USED FOR UNKNOWN INDICATION
     Route: 048
  4. BUSPIRONE [Concomitant]
     Indication: ANXIETY
     Dosage: 1 IN MORNING 1 IN EVENING AT NIGHT
     Route: 048
  5. ZOLOFT [Concomitant]
     Indication: DEPRESSION
     Dosage: AT NIGHT
     Route: 048
  6. PREMARIN [Concomitant]
     Indication: HOT FLUSH

REACTIONS (2)
  - TRICHOMONIASIS [None]
  - VAGINAL INFECTION [None]
